FAERS Safety Report 24580311 (Version 3)
Quarter: 2025Q1

REPORT INFORMATION
  Report Type: Spontaneous
  Country: SE (occurrence: SE)
  Receive Date: 20241105
  Receipt Date: 20250102
  Transmission Date: 20250409
  Serious: No
  Sender: PFIZER
  Company Number: SE-PFIZER INC-202400288676

PATIENT
  Sex: Female

DRUGS (1)
  1. ESTRADIOL [Suspect]
     Active Substance: ESTRADIOL

REACTIONS (1)
  - Device physical property issue [Unknown]
